FAERS Safety Report 13075893 (Version 1)
Quarter: 2016Q4

REPORT INFORMATION
  Report Type: Spontaneous
  Country: BE (occurrence: BE)
  Receive Date: 20161230
  Receipt Date: 20161230
  Transmission Date: 20170207
  Serious: Yes (Other)
  Sender: FDA-Public Use
  Company Number: BE-ASTELLAS-2016US050955

PATIENT
  Age: 41 Year

DRUGS (4)
  1. TACROLIMUS. [Suspect]
     Active Substance: TACROLIMUS
     Indication: STEM CELL TRANSPLANT
     Dosage: UNK UNK, UNKNOWN FREQ.
     Route: 065
  2. TACROLIMUS. [Suspect]
     Active Substance: TACROLIMUS
     Indication: STEM CELL TRANSPLANT
  3. MYCOPHENOLATE MOFETIL. [Concomitant]
     Active Substance: MYCOPHENOLATE MOFETIL
     Indication: STEM CELL TRANSPLANT
     Dosage: UNK UNK, UNKNOWN FREQ.
     Route: 065
  4. MYCOPHENOLATE MOFETIL. [Concomitant]
     Active Substance: MYCOPHENOLATE MOFETIL
     Indication: STEM CELL TRANSPLANT

REACTIONS (13)
  - Graft versus host disease in eye [Recovering/Resolving]
  - Generalised oedema [Recovering/Resolving]
  - Onycholysis [Unknown]
  - Respiratory distress [Recovering/Resolving]
  - Septic shock [Unknown]
  - Pericardial effusion [Recovering/Resolving]
  - Bronchopulmonary aspergillosis [Recovering/Resolving]
  - Yellow nail syndrome [Unknown]
  - Serositis [Recovering/Resolving]
  - Graft versus host disease [Recovering/Resolving]
  - Plasma cell myeloma [Recovered/Resolved]
  - Pleural effusion [Recovering/Resolving]
  - Pneumonia [Recovering/Resolving]
